FAERS Safety Report 14352307 (Version 1)
Quarter: 2018Q1

REPORT INFORMATION
  Report Type: Spontaneous
  Country: JP (occurrence: JP)
  Receive Date: 20180104
  Receipt Date: 20180104
  Transmission Date: 20180509
  Serious: Yes (Other)
  Sender: FDA-Public Use
  Company Number: JP-ELI_LILLY_AND_COMPANY-JP201712012198

PATIENT
  Age: 45 Year
  Sex: Female

DRUGS (4)
  1. TEGRETOL [Concomitant]
     Active Substance: CARBAMAZEPINE
  2. CALONAL [Concomitant]
     Active Substance: ACETAMINOPHEN
  3. DULOXETINE HYDROCHLORIDE. [Suspect]
     Active Substance: DULOXETINE HYDROCHLORIDE
     Indication: PRODUCT USED FOR UNKNOWN INDICATION
     Dosage: 20 MG, DAILY
     Route: 048
     Dates: start: 201611, end: 201612
  4. TEGRETOL [Concomitant]
     Active Substance: CARBAMAZEPINE

REACTIONS (1)
  - Leukopenia [Unknown]
